FAERS Safety Report 19726135 (Version 1)
Quarter: 2021Q3

REPORT INFORMATION
  Report Type: Spontaneous
  Country: US (occurrence: US)
  Receive Date: 20210819
  Receipt Date: 20210819
  Transmission Date: 20211014
  Serious: Yes (Other)
  Sender: FDA-Public Use
  Company Number: US-TEVA-2021-US-1941702

PATIENT
  Age: 80 Year
  Sex: Male

DRUGS (2)
  1. TESTOSTERONE. [Suspect]
     Active Substance: TESTOSTERONE
     Dosage: 3 PUMPS TOTAL PER DAY
     Route: 065
  2. TESTOSTERONE. [Suspect]
     Active Substance: TESTOSTERONE
     Dosage: USED 2 PUMPS OF THE GEL, HE WAS APPLYING MORE PUMPS (EXACT DOSE IS UNKNOWN) TO HIS THIGHS
     Route: 065

REACTIONS (7)
  - Blood testosterone increased [Unknown]
  - Product administered at inappropriate site [Unknown]
  - Blood testosterone decreased [Unknown]
  - Acne [Unknown]
  - Incorrect dose administered by device [Unknown]
  - Extra dose administered [Unknown]
  - Erectile dysfunction [Unknown]
